FAERS Safety Report 9725169 (Version 2)
Quarter: 2013Q4

REPORT INFORMATION
  Report Type: Spontaneous
  Country: CA (occurrence: CA)
  Receive Date: 20131203
  Receipt Date: 20131203
  Transmission Date: 20140711
  Serious: Yes (Hospitalization, Other)
  Sender: FDA-Public Use
  Company Number: CA-BEH-2013038155

PATIENT
  Age: 3 Month
  Sex: Male
  Weight: 6 kg

DRUGS (2)
  1. PRIVIGEN [Suspect]
     Indication: KAWASAKI^S DISEASE
     Dosage: 2 G/KG
     Route: 042
     Dates: start: 20130913, end: 20130914
  2. PRIVIGEN [Suspect]
     Dosage: 2 G/KG
     Route: 042
     Dates: start: 20130910

REACTIONS (6)
  - Acute haemolytic transfusion reaction [Unknown]
  - Haemoglobin decreased [Unknown]
  - ABO incompatibility [Unknown]
  - Kawasaki^s disease [Unknown]
  - Flushing [Unknown]
  - Tachycardia [Unknown]
